FAERS Safety Report 5146791-6 (Version None)
Quarter: 2006Q4

REPORT INFORMATION
  Report Type: 
  Country: None (occurrence: None)
  Receive Date: 20061109
  Receipt Date: 20061101
  Transmission Date: 20070319
  Serious: Yes (Other)
  Sender: FDA-Public Use
  Company Number: GB-JNJFOC-20051202926

PATIENT
  Sex: Female

DRUGS (4)
  1. TOPAMAX [Suspect]
     Indication: EPILEPSY
     Route: 048
  2. CLOBAZAM [Concomitant]
     Route: 065
  3. LAMICTAL [Concomitant]
     Route: 065
  4. VALPROATE SODIUM [Concomitant]

REACTIONS (1)
  - ABORTION SPONTANEOUS [None]
